FAERS Safety Report 5872321-7 (Version None)
Quarter: 2008Q3

REPORT INFORMATION
  Report Type: 
  Country: None (occurrence: None)
  Receive Date: 20080905
  Receipt Date: 20080804
  Transmission Date: 20090109
  Serious: Yes (Death, Hospitalization)
  Sender: FDA-Public Use
  Company Number: PH-SANOFI-SYNTHELABO-A01200810533

PATIENT
  Sex: Male
  Weight: 65 kg

DRUGS (8)
  1. OMEPRAZOLE [Concomitant]
     Indication: PROPHYLAXIS AGAINST GASTROINTESTINAL ULCER
     Dosage: 40 MG
     Route: 042
     Dates: start: 20080527, end: 20080529
  2. DIGOXIN [Concomitant]
     Indication: CARDIAC FAILURE
     Dosage: 0.25 MG
     Route: 048
     Dates: start: 20080527, end: 20080529
  3. CITICOLINE [Concomitant]
     Indication: CEREBROVASCULAR ACCIDENT
     Dosage: UNK
     Route: 048
     Dates: start: 20080527, end: 20080529
  4. AMLODIPINE [Concomitant]
     Indication: HYPERTENSION
     Dosage: 2.5 MG
     Route: 048
     Dates: start: 20080527, end: 20080529
  5. TRIMETAZIDINE [Concomitant]
     Indication: ACUTE MYOCARDIAL INFARCTION
     Dosage: 30 MG
     Route: 048
     Dates: start: 20080527, end: 20080529
  6. KMN [Concomitant]
     Indication: ACUTE MYOCARDIAL INFARCTION
     Dosage: 300 MG
     Route: 048
     Dates: start: 20080527, end: 20080529
  7. ASPIRIN [Concomitant]
     Indication: ACUTE MYOCARDIAL INFARCTION
     Dosage: 80 MG
     Route: 048
     Dates: start: 20080527, end: 20080529
  8. PLAVIX [Suspect]
     Indication: CHEST PAIN
     Route: 048
     Dates: start: 20080401, end: 20080529

REACTIONS (2)
  - ACUTE MYOCARDIAL INFARCTION [None]
  - DYSARTHRIA [None]
